FAERS Safety Report 8426416-4 (Version None)
Quarter: 2012Q2

REPORT INFORMATION
  Report Type: 
  Country: None (occurrence: None)
  Receive Date: 20120523
  Receipt Date: 20120505
  Transmission Date: 20120825
  Serious: Yes (Other)
  Sender: FDA-Public Use
  Company Number: GAM-072-12-GB

PATIENT
  Age: 59 Year
  Sex: Female

DRUGS (1)
  1. OCTAGAM [Suspect]
     Indication: SKIN DISORDER
     Dosage: 180 G (1X 1/MONTH), INTRAVENOUS (NOT OTHERWISE SPECIFIED)
     Route: 042
     Dates: start: 20120227, end: 20120301

REACTIONS (3)
  - TRANSMISSION OF AN INFECTIOUS AGENT VIA A MEDICINAL PRODUCT [None]
  - IMMUNISATION [None]
  - HEPATITIS B SURFACE ANTIBODY POSITIVE [None]
